FAERS Safety Report 18623415 (Version 1)
Quarter: 2020Q4

REPORT INFORMATION
  Report Type: Spontaneous
  Country: CA (occurrence: CA)
  Receive Date: 20201216
  Receipt Date: 20201216
  Transmission Date: 20210114
  Serious: Yes (Other)
  Sender: FDA-Public Use
  Company Number: CA-BAYER-2020-272719

PATIENT
  Sex: Female

DRUGS (13)
  1. FLUTICASONE;FORMOTEROL [Suspect]
     Active Substance: FLUTICASONE\FORMOTEROL
     Route: 048
  2. LACTOSE [Suspect]
     Active Substance: LACTOSE
  3. SODIUM GLUTAMATE [Suspect]
     Active Substance: MONOSODIUM GLUTAMATE
  4. TELMISARTAN. [Suspect]
     Active Substance: TELMISARTAN
  5. CLOXACILLIN [Suspect]
     Active Substance: CLOXACILLIN
  6. RANITIDINE. [Suspect]
     Active Substance: RANITIDINE
  7. SULFASALAZINE. [Suspect]
     Active Substance: SULFASALAZINE
  8. TERBUTALINE [Suspect]
     Active Substance: TERBUTALINE
  9. AVELOX [Suspect]
     Active Substance: MOXIFLOXACIN HYDROCHLORIDE
  10. COLCHICINE. [Suspect]
     Active Substance: COLCHICINE
     Indication: CHONDROCALCINOSIS PYROPHOSPHATE
  11. IRON [Suspect]
     Active Substance: IRON
  12. MORPHINE [Suspect]
     Active Substance: MORPHINE
  13. PREGABALIN. [Suspect]
     Active Substance: PREGABALIN

REACTIONS (7)
  - Allergy to metals [None]
  - Rubber sensitivity [None]
  - Food allergy [None]
  - Drug hypersensitivity [None]
  - Drug intolerance [None]
  - Iodine allergy [None]
  - Seasonal allergy [None]
